FAERS Safety Report 10461408 (Version 5)
Quarter: 2015Q4

REPORT INFORMATION
  Report Type: Spontaneous
  Country: NL (occurrence: NL)
  Receive Date: 20140918
  Receipt Date: 20151028
  Transmission Date: 20160304
  Serious: Yes (Hospitalization)
  Sender: FDA-Public Use
  Company Number: PHHY2014NL119598

PATIENT
  Age: 61 Year
  Sex: Female

DRUGS (1)
  1. DICLOFENAC [Suspect]
     Active Substance: DICLOFENAC
     Indication: RENAL COLIC
     Route: 030

REACTIONS (8)
  - Dermatitis [Unknown]
  - Pain [Unknown]
  - Erythema [Unknown]
  - Embolia cutis medicamentosa [Unknown]
  - Blister [Unknown]
  - Skin lesion [Unknown]
  - Skin necrosis [Unknown]
  - Pyrexia [Unknown]
